FAERS Safety Report 9178831 (Version 1)
Quarter: 2012Q4

REPORT INFORMATION
  Report Type: 
  Country: US (occurrence: US)
  Receive Date: 20121029
  Receipt Date: 20121029
  Transmission Date: 20130627
  Serious: No
  Sender: FDA-Public Use
  Company Number: US-GLAXOSMITHKLINE-A0996280A

PATIENT
  Sex: Male

DRUGS (2)
  1. SORILUX [Suspect]
  2. CLOBETASOL [Concomitant]
     Route: 061

REACTIONS (2)
  - Headache [Unknown]
  - Pain [Unknown]
